FAERS Safety Report 7458326-3 (Version None)
Quarter: 2011Q2

REPORT INFORMATION
  Report Type: 
  Country: None (occurrence: None)
  Receive Date: 20110504
  Receipt Date: 20110428
  Transmission Date: 20111010
  Serious: Yes (Hospitalization)
  Sender: FDA-Public Use
  Company Number: US-B.I. PHARMACEUTICALS,INC./RIDGEFIELD-2011-BP-10089BP

PATIENT
  Age: 71 Year
  Sex: Male

DRUGS (7)
  1. PRADAXA [Suspect]
     Indication: ATRIAL FLUTTER
     Dosage: 300 MG
     Route: 048
     Dates: start: 20110201, end: 20110402
  2. NIFEDIPINE [Concomitant]
     Indication: RAYNAUD'S PHENOMENON
  3. LOVINOX [Concomitant]
  4. SIMVASTATIN [Concomitant]
  5. VIACTIV [Concomitant]
  6. FISH OIL [Concomitant]
  7. BONIVA [Concomitant]

REACTIONS (4)
  - CHEST PAIN [None]
  - PNEUMONIA [None]
  - PULMONARY EMBOLISM [None]
  - HAEMOPTYSIS [None]
